FAERS Safety Report 20345560 (Version 1)
Quarter: 2022Q1

REPORT INFORMATION
  Report Type: Spontaneous
  Country: US (occurrence: None)
  Receive Date: 20220118
  Receipt Date: 20220118
  Transmission Date: 20220423
  Serious: Yes (Other)
  Sender: FDA-Public Use
  Company Number: 2022A015709

PATIENT
  Age: 864 Month
  Sex: Female
  Weight: 90.7 kg

DRUGS (1)
  1. LYNPARZA [Suspect]
     Active Substance: OLAPARIB
     Indication: Neoplasm malignant
     Route: 048

REACTIONS (13)
  - COVID-19 pneumonia [Unknown]
  - Tumour marker increased [Unknown]
  - Dyspnoea [Unknown]
  - Throat tightness [Unknown]
  - COVID-19 [Unknown]
  - Hernia [Unknown]
  - Dysphagia [Unknown]
  - Dysgeusia [Unknown]
  - Pain [Unknown]
  - Haemoglobin decreased [Unknown]
  - Insomnia [Unknown]
  - Abdominal distension [Unknown]
  - Red blood cell count decreased [Unknown]

NARRATIVE: CASE EVENT DATE: 20211201
